FAERS Safety Report 14290259 (Version 2)
Quarter: 2018Q1

REPORT INFORMATION
  Report Type: Spontaneous
  Country: DE (occurrence: DE)
  Receive Date: 20171215
  Receipt Date: 20180309
  Transmission Date: 20180509
  Serious: Yes (Other)
  Sender: FDA-Public Use
  Company Number: DE-WEST-WARD PHARMACEUTICALS CORP.-DE-H14001-17-04792

PATIENT
  Age: 64 Year
  Sex: Male
  Weight: 74 kg

DRUGS (5)
  1. CARBOPLATIN. [Suspect]
     Active Substance: CARBOPLATIN
     Dosage: 450 MG, Q3WK
     Route: 042
     Dates: start: 20170803, end: 20171026
  2. DENOSUMAB SOLUTION FOR INJECTION [Suspect]
     Active Substance: DENOSUMAB
     Indication: NON-SMALL CELL LUNG CANCER STAGE IV
     Dosage: 120 MG, Q3WK
     Route: 058
     Dates: start: 20170803, end: 20171006
  3. PEMETREXED. [Suspect]
     Active Substance: PEMETREXED
     Indication: NON-SMALL CELL LUNG CANCER STAGE IV
     Dosage: 930 MG, Q3WK
     Route: 042
     Dates: start: 20170803, end: 20171006
  4. CARBOPLATIN. [Suspect]
     Active Substance: CARBOPLATIN
     Indication: NON-SMALL CELL LUNG CANCER STAGE IV
     Dosage: 450 MG, Q3WK
     Route: 042
     Dates: start: 20170803, end: 20171006
  5. PEMETREXED. [Suspect]
     Active Substance: PEMETREXED
     Dosage: 930 MG, Q3WK
     Route: 042
     Dates: start: 20170803, end: 20171026

REACTIONS (3)
  - Condition aggravated [Not Recovered/Not Resolved]
  - Gingival disorder [Not Recovered/Not Resolved]
  - Off label use [Unknown]

NARRATIVE: CASE EVENT DATE: 20171021
